FAERS Safety Report 9486547 (Version 1)
Quarter: 2013Q3

REPORT INFORMATION
  Report Type: Spontaneous
  Country: US (occurrence: None)
  Receive Date: 20130827
  Receipt Date: 20130827
  Transmission Date: 20140515
  Serious: No
  Sender: FDA-Public Use
  Company Number: None

PATIENT
  Age: 28 Year
  Sex: Female
  Weight: 84.82 kg

DRUGS (1)
  1. PARAGARD [Suspect]

REACTIONS (2)
  - Bacterial vaginosis [None]
  - Medical device complication [None]
